FAERS Safety Report 7725188-6 (Version None)
Quarter: 2011Q3

REPORT INFORMATION
  Report Type: 
  Country: None (occurrence: None)
  Receive Date: 20110901
  Receipt Date: 20110829
  Transmission Date: 20111222
  Serious: Yes (Other)
  Sender: FDA-Public Use
  Company Number: DE-ABBOTT-11P-062-0850022-00

PATIENT
  Sex: Female
  Weight: 75 kg

DRUGS (3)
  1. KALETRA [Suspect]
     Indication: PRODUCT USED FOR UNKNOWN INDICATION
     Dosage: 2 TABLETS ORAL, TOTAL 400MG
     Route: 048
  2. KALETRA [Suspect]
     Dosage: TOTAL 500MG, 2 TABLETS
     Route: 048
  3. RETROVIR [Concomitant]
     Indication: PRODUCT USED FOR UNKNOWN INDICATION
     Dosage: TOTAL DOSE 500MG, 2 TABLETS ORAL
     Route: 048

REACTIONS (2)
  - ACCIDENTAL EXPOSURE [None]
  - CONVULSION [None]
